FAERS Safety Report 14795855 (Version 2)
Quarter: 2018Q3

REPORT INFORMATION
  Report Type: Report from Study
  Country: US (occurrence: US)
  Receive Date: 20180423
  Receipt Date: 20180720
  Transmission Date: 20181010
  Serious: No
  Sender: FDA-Public Use
  Company Number: US-AMGEN-USASL2018038758

PATIENT
  Age: 75 Year
  Sex: Male
  Weight: 61.68 kg

DRUGS (2)
  1. REPATHA [Suspect]
     Active Substance: EVOLOCUMAB
     Indication: PRODUCT USED FOR UNKNOWN INDICATION
     Dosage: UNK
     Route: 065
     Dates: start: 201709, end: 201801
  2. REPATHA [Suspect]
     Active Substance: EVOLOCUMAB
     Dosage: UNK
     Route: 065
     Dates: start: 201802, end: 20180319

REACTIONS (4)
  - Renal function test abnormal [Unknown]
  - Pain [Unknown]
  - Hepatic enzyme abnormal [Unknown]
  - Muscle enzyme [Unknown]
